FAERS Safety Report 7359689-X (Version None)
Quarter: 2011Q1

REPORT INFORMATION
  Report Type: 
  Country: None (occurrence: None)
  Receive Date: 20110317
  Receipt Date: 20100427
  Transmission Date: 20110831
  Serious: No
  Sender: FDA-Public Use
  Company Number: US-PFIZER INC-2010036995

PATIENT
  Sex: Female
  Weight: 74.8 kg

DRUGS (15)
  1. FOLIC ACID [Concomitant]
     Dosage: 1 MG, UNK
     Route: 048
  2. ASCORBIC ACID [Concomitant]
     Dosage: 1000 MG, 1X/DAY
     Route: 048
  3. COENZYME Q10 [Concomitant]
     Dosage: 100 MG, 1X/DAY
     Route: 048
  4. SITOSTEROL [Concomitant]
     Indication: SUPPLEMENTATION THERAPY
     Dosage: UNK
     Route: 048
  5. VITAMIN D [Concomitant]
     Dosage: 1000 IU, 2X/DAY
     Route: 048
  6. PROAIR HFA [Concomitant]
     Dosage: UNK
     Route: 055
  7. CITRACAL + D [Concomitant]
     Dosage: UNK
     Route: 048
  8. NEXIUM [Concomitant]
     Dosage: 40 MG, 1X/DAY
     Route: 048
  9. AMLODIPINE BESYLATE [Suspect]
     Indication: HYPERTENSION
     Dosage: 10 MG, 2X/DAY
     Route: 048
  10. MULTI-VITAMINS [Concomitant]
     Dosage: UNK
     Route: 048
  11. METHOTREXATE [Concomitant]
     Dosage: 2.5 MG, UNK
     Route: 048
  12. LORAZEPAM [Concomitant]
     Indication: SLEEP DISORDER
     Dosage: 1 MG, AS NEEDED
     Route: 048
  13. VITAMIN E [Concomitant]
     Dosage: 400 IU, 1X/DAY
     Route: 048
  14. TOPROL-XL [Concomitant]
     Dosage: 200 MG, 1X/DAY
     Route: 048
  15. MONTELUKAST SODIUM [Concomitant]
     Dosage: 10 MG, 1X/DAY
     Route: 048

REACTIONS (2)
  - BLOOD PRESSURE INADEQUATELY CONTROLLED [None]
  - DRUG INEFFECTIVE [None]
